FAERS Safety Report 23534069 (Version 2)
Quarter: 2024Q1

REPORT INFORMATION
  Report Type: Spontaneous
  Country: CO (occurrence: CO)
  Receive Date: 20240216
  Receipt Date: 20240228
  Transmission Date: 20240409
  Serious: Yes (Other)
  Sender: FDA-Public Use
  Company Number: CO-BAUSCHBL-2024BNL001660

PATIENT
  Age: 60 Year
  Sex: Male

DRUGS (11)
  1. BRIMONIDINE [Suspect]
     Active Substance: BRIMONIDINE TARTRATE
     Indication: Ocular hypertension
     Route: 061
  2. BRIMONIDINE [Suspect]
     Active Substance: BRIMONIDINE TARTRATE
  3. TIMOLOL [Suspect]
     Active Substance: TIMOLOL
     Indication: Ocular hypertension
     Route: 061
  4. TIMOLOL [Suspect]
     Active Substance: TIMOLOL
  5. PREDNISOLONE [Suspect]
     Active Substance: PREDNISOLONE
     Indication: Polychondritis
     Route: 065
  6. DORZOLAMIDE [Suspect]
     Active Substance: DORZOLAMIDE
     Indication: Ocular hypertension
     Route: 061
  7. AZATHIOPRINE [Suspect]
     Active Substance: AZATHIOPRINE
     Indication: Polychondritis
     Route: 065
  8. AZATHIOPRINE [Suspect]
     Active Substance: AZATHIOPRINE
     Route: 065
  9. AZATHIOPRINE [Suspect]
     Active Substance: AZATHIOPRINE
     Route: 065
  10. KETOROLAC [Concomitant]
     Active Substance: KETOROLAC TROMETHAMINE
     Indication: Antiinflammatory therapy
     Route: 061
  11. KETOROLAC [Concomitant]
     Active Substance: KETOROLAC TROMETHAMINE
     Indication: Cataract

REACTIONS (2)
  - Ocular hypertension [Recovered/Resolved]
  - Therapy partial responder [Unknown]
